FAERS Safety Report 17867156 (Version 1)
Quarter: 2020Q2

REPORT INFORMATION
  Report Type: Spontaneous
  Country: US (occurrence: US)
  Receive Date: 20200605
  Receipt Date: 20200605
  Transmission Date: 20200714
  Serious: Yes (Other)
  Sender: FDA-Public Use
  Company Number: US-ALLERGAN-2021798US

PATIENT
  Sex: Female

DRUGS (1)
  1. RESTASIS [Suspect]
     Active Substance: CYCLOSPORINE
     Indication: DRY EYE

REACTIONS (5)
  - Taste disorder [Not Recovered/Not Resolved]
  - Eye irritation [Unknown]
  - Patient dissatisfaction with treatment [Unknown]
  - Suicidal ideation [Unknown]
  - Drug ineffective [Unknown]
